FAERS Safety Report 12227963 (Version 1)
Quarter: 2016Q2

REPORT INFORMATION
  Report Type: Spontaneous
  Country: DK (occurrence: DK)
  Receive Date: 20160401
  Receipt Date: 20160401
  Transmission Date: 20160815
  Serious: Yes (Hospitalization, Disabling, Other)
  Sender: FDA-Public Use
  Company Number: DK-AUROBINDO-AUR-APL-2016-03879

PATIENT
  Age: 62 Year
  Sex: Male

DRUGS (2)
  1. RAMIPRIL. [Suspect]
     Active Substance: RAMIPRIL
     Indication: HYPERTENSION
     Route: 065
  2. BRILIQUE [Suspect]
     Active Substance: TICAGRELOR
     Indication: PRODUCT USED FOR UNKNOWN INDICATION
     Route: 065

REACTIONS (17)
  - Hypersensitivity [Unknown]
  - Diarrhoea [Unknown]
  - Fatigue [Unknown]
  - Disturbance in attention [Unknown]
  - Hepatomegaly [Unknown]
  - Insomnia [Unknown]
  - Rash [Unknown]
  - Inflammation [Unknown]
  - Pyrexia [Unknown]
  - Weight increased [Unknown]
  - Early retirement [Unknown]
  - Seizure [Unknown]
  - Mobility decreased [Unknown]
  - Yellow skin [Unknown]
  - Cough [Unknown]
  - Hepatic failure [Unknown]
  - Dyspnoea [Unknown]

NARRATIVE: CASE EVENT DATE: 20130101
